FAERS Safety Report 5047313-0 (Version None)
Quarter: 2006Q3

REPORT INFORMATION
  Report Type: 
  Country: None (occurrence: None)
  Receive Date: 20060711
  Receipt Date: 20060703
  Transmission Date: 20061208
  Serious: Yes (Life-Threatening, Hospitalization, Other)
  Sender: FDA-Public Use
  Company Number: 2006SE03768

PATIENT
  Age: 30114 Day
  Sex: Female
  Weight: 108 kg

DRUGS (9)
  1. METOPROLOL SUCCINATE [Suspect]
     Indication: HYPERTENSION
     Route: 048
     Dates: start: 20050801, end: 20060626
  2. METOPROLOL SUCCINATE [Interacting]
     Indication: CARDIAC FAILURE
     Route: 048
     Dates: start: 20050801, end: 20060626
  3. DIGOXIN [Interacting]
     Indication: CARDIAC FAILURE
     Route: 048
     Dates: start: 20050801, end: 20060626
  4. ENALAPRIL [Concomitant]
     Indication: HYPERTENSION
     Route: 048
     Dates: start: 20050801, end: 20060626
  5. ENALAPRIL [Concomitant]
     Route: 048
     Dates: start: 20060703
  6. WARAN [Concomitant]
     Indication: CARDIAC FAILURE
     Dosage: 2.5 TO 5 MG/ DAY
     Route: 048
     Dates: start: 20050801, end: 20060626
  7. SPIRONOLAKTON [Concomitant]
     Indication: DIURETIC THERAPY
     Route: 048
     Dates: start: 20050801, end: 20060626
  8. LASIX [Concomitant]
     Indication: DIURETIC THERAPY
     Route: 048
     Dates: start: 20050801, end: 20060626
  9. LASIX [Concomitant]
     Route: 048
     Dates: start: 20060703

REACTIONS (5)
  - BRADYCARDIA [None]
  - DEHYDRATION [None]
  - DRUG INTERACTION [None]
  - FALL [None]
  - FATIGUE [None]
